FAERS Safety Report 9308364 (Version 2)
Quarter: 2013Q2

REPORT INFORMATION
  Report Type: Spontaneous
  Country: CN (occurrence: CN)
  Receive Date: 20130524
  Receipt Date: 20130605
  Transmission Date: 20140414
  Serious: Yes (Hospitalization, Other)
  Sender: FDA-Public Use
  Company Number: CN-GLAXOSMITHKLINE-B0893837A

PATIENT
  Age: 24 Year
  Sex: Male

DRUGS (5)
  1. LAMIVUDINE-HBV [Suspect]
     Indication: HEPATITIS B
     Dosage: 100MG PER DAY
     Route: 048
  2. SILIBININ [Concomitant]
     Indication: HEPATITIS B
     Dosage: 70MG THREE TIMES PER DAY
     Route: 048
  3. GLUTATHIONE [Concomitant]
     Indication: HEPATITIS B
     Dosage: 1.2G PER DAY
     Route: 042
  4. COMPOUND GLYCYRRHIZIN [Concomitant]
     Dosage: 80ML PER DAY
     Route: 042
  5. HEPATOCYTE GROWTH FACTOR [Concomitant]
     Dosage: 120MG PER DAY
     Route: 042

REACTIONS (5)
  - Bone marrow failure [Recovered/Resolved]
  - Bone marrow failure [Unknown]
  - Anaemia [Unknown]
  - Red blood cell count decreased [Unknown]
  - Haemoglobin decreased [Unknown]
